FAERS Safety Report 9395981 (Version 3)
Quarter: 2013Q3

REPORT INFORMATION
  Report Type: Spontaneous
  Country: US (occurrence: US)
  Receive Date: 20130711
  Receipt Date: 20130913
  Transmission Date: 20140515
  Serious: Yes (Death, Hospitalization, Other)
  Sender: FDA-Public Use
  Company Number: US-PFIZER INC-2013202516

PATIENT
  Age: 51 Year
  Sex: Female

DRUGS (2)
  1. CHANTIX [Suspect]
     Dosage: UNK
     Dates: start: 20091001, end: 20091101
  2. CHANTIX [Suspect]
     Dosage: STARTING MONTH PACK
     Dates: start: 20091012

REACTIONS (1)
  - Loss of consciousness [Fatal]
